FAERS Safety Report 23798411 (Version 1)
Quarter: 2024Q2

REPORT INFORMATION
  Report Type: Spontaneous
  Country: CN (occurrence: CN)
  Receive Date: 20240430
  Receipt Date: 20240430
  Transmission Date: 20240715
  Serious: Yes (Hospitalization, Other)
  Sender: FDA-Public Use
  Company Number: CN-SANDOZ-SDZ2024CN043960

PATIENT
  Age: 56 Year
  Sex: Male
  Weight: 50 kg

DRUGS (4)
  1. PROMETHAZINE [Suspect]
     Active Substance: PROMETHAZINE HYDROCHLORIDE
     Indication: Dysphoria
     Dosage: UNK
     Route: 065
  2. PROMETHAZINE [Suspect]
     Active Substance: PROMETHAZINE HYDROCHLORIDE
     Indication: Illusion
  3. PROMETHAZINE [Suspect]
     Active Substance: PROMETHAZINE HYDROCHLORIDE
     Indication: Initial insomnia
  4. VORICONAZOLE [Suspect]
     Active Substance: VORICONAZOLE
     Indication: Upper respiratory fungal infection
     Dosage: 400 MG, Q12H
     Route: 048
     Dates: start: 20240420, end: 20240420

REACTIONS (4)
  - Dysphoria [Recovering/Resolving]
  - Illusion [Recovering/Resolving]
  - Disorganised speech [Recovering/Resolving]
  - Initial insomnia [Recovering/Resolving]

NARRATIVE: CASE EVENT DATE: 20240424
